FAERS Safety Report 8097587-7 (Version None)
Quarter: 2012Q1

REPORT INFORMATION
  Report Type: 
  Country: None (occurrence: None)
  Receive Date: 20120128
  Receipt Date: 20110630
  Transmission Date: 20120608
  Serious: No
  Sender: FDA-Public Use
  Company Number: US-ABBOTT-11P-163-0836268-00

PATIENT
  Age: 71 Year
  Sex: Female
  Weight: 61.29 kg

DRUGS (3)
  1. HUMIRA [Suspect]
     Indication: PSORIASIS
     Dates: start: 20110623
  2. ATARAX [Concomitant]
     Indication: PSORIASIS
  3. BOVERA [Concomitant]
     Indication: BONE DISORDER
     Route: 042
     Dates: start: 20110620

REACTIONS (2)
  - NERVOUSNESS [None]
  - NAUSEA [None]
